FAERS Safety Report 19021927 (Version 2)
Quarter: 2023Q2

REPORT INFORMATION
  Report Type: Spontaneous
  Country: US (occurrence: US)
  Receive Date: 20210317
  Receipt Date: 20230614
  Transmission Date: 20230722
  Serious: No
  Sender: FDA-Public Use
  Company Number: US-SUNOVION-2021SUN000775

PATIENT
  Sex: Female

DRUGS (2)
  1. APTIOM [Suspect]
     Active Substance: ESLICARBAZEPINE ACETATE
     Indication: Partial seizures
     Dosage: 1000 MG (APTIOM 200MG AND APTIOM 800MG)
     Route: 048
  2. APTIOM [Suspect]
     Active Substance: ESLICARBAZEPINE ACETATE
     Dosage: 2 200 MG AND 1 800 MG
     Route: 048

REACTIONS (3)
  - Fear [Unknown]
  - Therapy cessation [Unknown]
  - Off label use [Unknown]
